FAERS Safety Report 9123304 (Version 1)
Quarter: 2013Q1

REPORT INFORMATION
  Report Type: Spontaneous
  Country: US (occurrence: US)
  Receive Date: 20130115
  Receipt Date: 20130115
  Transmission Date: 20140127
  Serious: Yes (Other)
  Sender: FDA-Public Use
  Company Number: US-009507513-1201USA04242

PATIENT
  Age: 35 Year
  Sex: Female
  Weight: 81.65 kg

DRUGS (1)
  1. SINGULAIR [Suspect]
     Indication: DEPRESSION
     Dosage: 10 MG, QD
     Route: 048
     Dates: start: 20100401, end: 20100423

REACTIONS (4)
  - Suicidal ideation [Recovering/Resolving]
  - Anger [Recovering/Resolving]
  - Depression [Recovering/Resolving]
  - Irritability [Recovering/Resolving]
